FAERS Safety Report 14376104 (Version 1)
Quarter: 2018Q1

REPORT INFORMATION
  Report Type: Spontaneous
  Country: CA (occurrence: CA)
  Receive Date: 20180111
  Receipt Date: 20180111
  Transmission Date: 20180509
  Serious: Yes (Other)
  Sender: FDA-Public Use
  Company Number: CA-AMGEN-CANSP2017190307

PATIENT
  Age: 81 Year
  Sex: Female
  Weight: 65.13 kg

DRUGS (5)
  1. HYDROCHLOROTHIAZIDE. [Concomitant]
     Active Substance: HYDROCHLOROTHIAZIDE
     Dosage: 25 MG, UNK
  2. ALLOPURINOL. [Concomitant]
     Active Substance: ALLOPURINOL
     Dosage: 300 MG, UNK
  3. PROLIA [Suspect]
     Active Substance: DENOSUMAB
     Indication: OSTEOPOROSIS
     Dosage: 60 MG, Q6MO
     Route: 058
     Dates: start: 20131008, end: 20171008
  4. FOSINOPRIL [Concomitant]
     Active Substance: FOSINOPRIL
     Dosage: 10 MG, UNK
  5. PLENDIL [Concomitant]
     Active Substance: FELODIPINE
     Dosage: 7.5 MG, UNK

REACTIONS (14)
  - Skin exfoliation [Recovered/Resolved]
  - Cystitis [Recovered/Resolved]
  - Fall [Unknown]
  - Groin pain [Recovered/Resolved]
  - Muscle disorder [Unknown]
  - Paraesthesia [Recovered/Resolved]
  - Pain in jaw [Recovered/Resolved]
  - Hypoaesthesia [Recovered/Resolved]
  - Pain in extremity [Recovered/Resolved]
  - Diarrhoea [Recovered/Resolved]
  - Arthralgia [Recovered/Resolved]
  - Erythema [Recovered/Resolved]
  - Dry skin [Recovered/Resolved]
  - Endometrial adenocarcinoma [Recovered/Resolved]

NARRATIVE: CASE EVENT DATE: 2015
